FAERS Safety Report 18791489 (Version 2)
Quarter: 2021Q4

REPORT INFORMATION
  Report Type: Spontaneous
  Country: GB (occurrence: GB)
  Receive Date: 20210127
  Receipt Date: 20211020
  Transmission Date: 20220303
  Serious: Yes (Other)
  Sender: FDA-Public Use
  Company Number: GB-MHRA-EYC 00238054

PATIENT
  Age: 50 Year
  Sex: Male
  Weight: 76.2 kg

DRUGS (5)
  1. CITALOPRAM [Suspect]
     Active Substance: CITALOPRAM HYDROBROMIDE
     Indication: Ill-defined disorder
     Dosage: 20MG
     Route: 048
     Dates: start: 20200131
  2. AZITHROMYCIN ANHYDROUS [Concomitant]
     Active Substance: AZITHROMYCIN ANHYDROUS
     Indication: Ill-defined disorder
     Dosage: UNK
     Route: 065
  3. KALYDECO [Concomitant]
     Active Substance: IVACAFTOR
     Indication: Ill-defined disorder
     Dosage: UNK
     Route: 065
  4. ELEXACAFTOR\IVACAFTOR\TEZACAFTOR [Concomitant]
     Active Substance: ELEXACAFTOR\IVACAFTOR\TEZACAFTOR
     Indication: Ill-defined disorder
     Dosage: UNK
     Route: 065
  5. ZOPICLONE [Concomitant]
     Active Substance: ZOPICLONE
     Indication: Ill-defined disorder
     Dosage: UNK
     Route: 065

REACTIONS (8)
  - Agitation [Unknown]
  - Decreased appetite [Unknown]
  - Disturbance in attention [Unknown]
  - Confusional state [Unknown]
  - Depression [Unknown]
  - Nausea [Unknown]
  - Night sweats [Unknown]
  - Sleep disorder [Unknown]
